FAERS Safety Report 12442524 (Version 2)
Quarter: 2016Q2

REPORT INFORMATION
  Report Type: Spontaneous
  Country: US (occurrence: US)
  Receive Date: 20160607
  Receipt Date: 20160624
  Transmission Date: 20160815
  Serious: Yes (Hospitalization)
  Sender: FDA-Public Use
  Company Number: US-ASTELLAS-2016US021452

PATIENT
  Age: 84 Year
  Sex: Male

DRUGS (1)
  1. XTANDI [Suspect]
     Active Substance: ENZALUTAMIDE
     Indication: PRODUCT USED FOR UNKNOWN INDICATION
     Route: 065
     Dates: end: 20160527

REACTIONS (17)
  - Muscle twitching [Unknown]
  - Respiratory tract infection [Unknown]
  - Anxiety [Unknown]
  - Hot flush [Unknown]
  - Nasopharyngitis [Unknown]
  - Headache [Unknown]
  - Dyspnoea [Unknown]
  - Bone pain [Unknown]
  - Confusional state [Unknown]
  - Disorientation [Unknown]
  - Stomatitis [Unknown]
  - Back pain [Unknown]
  - Pruritus [Unknown]
  - Underdose [Unknown]
  - Peripheral swelling [Unknown]
  - Dizziness [Unknown]
  - Arrhythmia [Unknown]

NARRATIVE: CASE EVENT DATE: 201605
